FAERS Safety Report 7587636 (Version 3)
Quarter: 2012Q4

REPORT INFORMATION
  Report Type: Report from Study
  Country: US (occurrence: US)
  Receive Date: 20100915
  Receipt Date: 20121107
  Transmission Date: 20130627
  Serious: Yes (Hospitalization, Other)
  Sender: FDA-Public Use
  Company Number: US-BRISTOL-MYERS SQUIBB COMPANY-15286644

PATIENT
  Age: 66 Year
  Sex: Male
  Weight: 97 kg

DRUGS (13)
  1. CETUXIMAB [Suspect]
     Indication: NON-SMALL CELL LUNG CANCER
     Dosage: 400mg/m2 (Cycle 1 day1);On 19Jul2010 250mg/m2 IV cycle 1 Day8.last dose rec on 27Sep10
     Route: 042
     Dates: start: 20100712
  2. PACLITAXEL [Suspect]
     Indication: NON-SMALL CELL LUNG CANCER
     Route: 042
     Dates: start: 20100712
  3. CARBOPLATIN [Suspect]
     Indication: NON-SMALL CELL LUNG CANCER
     Dosage: 1DF= AUC=6.
     Route: 042
     Dates: start: 20100712
  4. DEXAMETHASONE [Suspect]
  5. TOBRAMYCIN [Suspect]
     Dosage: Drops
  6. AMLODIPINE [Concomitant]
  7. ASCORBIC ACID [Concomitant]
  8. AZELASTINE HCL [Concomitant]
  9. CHOLECALCIFEROL [Concomitant]
  10. UBIDECARENONE [Concomitant]
     Dosage: Co-enzyme Q10
  11. SYMBICORT [Concomitant]
  12. NASONEX [Concomitant]
  13. SPIRIVA [Concomitant]
     Dosage: Spiriva handii

REACTIONS (7)
  - Retinopathy [Not Recovered/Not Resolved]
  - Ulcerative keratitis [Not Recovered/Not Resolved]
  - Keratitis [Not Recovered/Not Resolved]
  - Corneal opacity [Not Recovered/Not Resolved]
  - Neutrophil count decreased [Recovered/Resolved]
  - White blood cell count decreased [Recovered/Resolved]
  - Bacteraemia [Recovered/Resolved]
